FAERS Safety Report 14033269 (Version 1)
Quarter: 2017Q4

REPORT INFORMATION
  Report Type: Spontaneous
  Country: US (occurrence: US)
  Receive Date: 20171002
  Receipt Date: 20171002
  Transmission Date: 20180321
  Serious: No
  Sender: FDA-Public Use
  Company Number: US-JAZZ-2017-US-010161

PATIENT
  Sex: Female

DRUGS (19)
  1. XYREM [Suspect]
     Active Substance: SODIUM OXYBATE
     Indication: CATAPLEXY
     Dosage: 2 G, QD
     Route: 048
     Dates: start: 201404, end: 201409
  2. PROVIGIL [Concomitant]
     Active Substance: MODAFINIL
  3. MORPHINE SULF [Concomitant]
     Active Substance: MORPHINE SULFATE
  4. AMBIEN [Concomitant]
     Active Substance: ZOLPIDEM TARTRATE
  5. GABAPENTIN. [Concomitant]
     Active Substance: GABAPENTIN
  6. XYREM [Suspect]
     Active Substance: SODIUM OXYBATE
     Dosage: 4.5G, BID
     Route: 048
     Dates: start: 201409
  7. FLUOXETINE HCL [Concomitant]
     Active Substance: FLUOXETINE HYDROCHLORIDE
  8. VENLAFAXINE HCL [Concomitant]
     Active Substance: VENLAFAXINE HYDROCHLORIDE
  9. ESCITALOPRAM [Concomitant]
     Active Substance: ESCITALOPRAM OXALATE
  10. MODAFINIL. [Concomitant]
     Active Substance: MODAFINIL
  11. XYREM [Suspect]
     Active Substance: SODIUM OXYBATE
     Dosage: DOSE ADJUSTMENT
     Route: 048
     Dates: start: 201404, end: 201409
  12. XANAX [Concomitant]
     Active Substance: ALPRAZOLAM
  13. LINZESS [Concomitant]
     Active Substance: LINACLOTIDE
  14. CITALOPRAM [Concomitant]
     Active Substance: CITALOPRAM HYDROBROMIDE
  15. DIAZEPAM. [Concomitant]
     Active Substance: DIAZEPAM
  16. XYREM [Suspect]
     Active Substance: SODIUM OXYBATE
     Indication: NARCOLEPSY
     Dosage: 4 G, QD
     Route: 048
     Dates: start: 201404, end: 201409
  17. PREDNISONE. [Concomitant]
     Active Substance: PREDNISONE
  18. LORAZEPAM. [Concomitant]
     Active Substance: LORAZEPAM
  19. RANITIDINE. [Concomitant]
     Active Substance: RANITIDINE

REACTIONS (1)
  - Hallucination [Unknown]
